FAERS Safety Report 7405588-4 (Version None)
Quarter: 2011Q2

REPORT INFORMATION
  Report Type: 
  Country: None (occurrence: None)
  Receive Date: 20110411
  Receipt Date: 20110330
  Transmission Date: 20111010
  Serious: Yes (Other)
  Sender: FDA-Public Use
  Company Number: PHHY2011BR27299

PATIENT
  Sex: Female
  Weight: 89 kg

DRUGS (1)
  1. TEGRETOL-XR [Suspect]
     Dosage: 1 DF, QD
     Route: 048

REACTIONS (1)
  - BRONCHITIS [None]
